FAERS Safety Report 5320145-1 (Version None)
Quarter: 2007Q2

REPORT INFORMATION
  Report Type: 
  Country: None (occurrence: None)
  Receive Date: 20070503
  Receipt Date: 20070420
  Transmission Date: 20071010
  Serious: Yes (Hospitalization)
  Sender: FDA-Public Use
  Company Number: MEDI-0005591

PATIENT
  Age: 28 Day
  Sex: Female
  Weight: 8.6 kg

DRUGS (1)
  1. SYNAGIS [Suspect]
     Indication: ANTIVIRAL PROPHYLAXIS
     Dates: start: 20051212

REACTIONS (3)
  - APNOEA [None]
  - CARDIAC ARREST [None]
  - RESPIRATORY SYNCYTIAL VIRUS BRONCHIOLITIS [None]
